FAERS Safety Report 25679712 (Version 1)
Quarter: 2025Q3

REPORT INFORMATION
  Report Type: Spontaneous
  Country: US (occurrence: US)
  Receive Date: 20250814
  Receipt Date: 20250814
  Transmission Date: 20251020
  Serious: Yes (Other)
  Sender: GE HEALTHCARE
  Company Number: US-GE HEALTHCARE-2025CSU010706

PATIENT
  Sex: Female

DRUGS (1)
  1. ADREVIEW [Suspect]
     Active Substance: IOBENGUANE I-123
     Indication: Diagnostic procedure
     Route: 042
     Dates: start: 20250806, end: 20250806

REACTIONS (3)
  - Chest discomfort [Recovering/Resolving]
  - Swollen tongue [Recovering/Resolving]
  - Throat irritation [Recovering/Resolving]

NARRATIVE: CASE EVENT DATE: 20250806
